FAERS Safety Report 26146547 (Version 1)
Quarter: 2025Q4

REPORT INFORMATION
  Report Type: Spontaneous
  Country: US (occurrence: US)
  Receive Date: 20251211
  Receipt Date: 20251211
  Transmission Date: 20260118
  Serious: No
  Sender: FERRING
  Company Number: US-FERRINGPH-2025FE05363

PATIENT
  Sex: Female

DRUGS (8)
  1. MENOPUR [Suspect]
     Active Substance: FOLLITROPIN\LUTEINIZING HORMONE
     Indication: Assisted reproductive technology
     Dosage: 450 INTERNATIONAL UNIT, DAILY X9-12 DAYS
     Route: 065
     Dates: start: 202305
  2. MENOPUR [Suspect]
     Active Substance: FOLLITROPIN\LUTEINIZING HORMONE
     Dosage: 450 INTERNATIONAL UNIT, DAILY X9-12 DAYS
     Route: 065
     Dates: start: 2023
  3. MENOPUR [Suspect]
     Active Substance: FOLLITROPIN\LUTEINIZING HORMONE
     Dosage: 450 INTERNATIONAL UNIT, DAILY X9-12 DAYS
     Route: 065
     Dates: start: 2023
  4. MENOPUR [Suspect]
     Active Substance: FOLLITROPIN\LUTEINIZING HORMONE
     Dosage: 450 INTERNATIONAL UNIT, DAILY X9-12 DAYS
     Route: 065
     Dates: start: 2023
  5. GONAL-F [Suspect]
     Active Substance: FOLLITROPIN
     Indication: Assisted reproductive technology
     Dosage: 450 INTERNATIONAL UNIT, DAILY X9-12 DAYS
     Route: 065
     Dates: start: 202305
  6. GONAL-F [Suspect]
     Active Substance: FOLLITROPIN
     Dosage: 450 INTERNATIONAL UNIT, DAILY X9-12 DAYS
     Route: 065
     Dates: start: 2023
  7. GONAL-F [Suspect]
     Active Substance: FOLLITROPIN
     Dosage: 450 INTERNATIONAL UNIT, DAILY X9-12 DAYS
     Route: 065
     Dates: start: 2023
  8. GONAL-F [Suspect]
     Active Substance: FOLLITROPIN
     Dosage: 450 INTERNATIONAL UNIT, DAILY X9-12 DAYS
     Route: 065
     Dates: start: 2023

REACTIONS (4)
  - Failed in vitro fertilisation [Unknown]
  - Failed in vitro fertilisation [Unknown]
  - Failed in vitro fertilisation [Unknown]
  - Failed in vitro fertilisation [Unknown]
